FAERS Safety Report 9090697 (Version 1)
Quarter: 2013Q1

REPORT INFORMATION
  Report Type: Report from Study
  Country: US (occurrence: US)
  Receive Date: 20130130
  Receipt Date: 20130130
  Transmission Date: 20140127
  Serious: No
  Sender: FDA-Public Use
  Company Number: US-ABBOTT-12P-163-0979340-00

PATIENT
  Age: 84 Year
  Sex: Male

DRUGS (5)
  1. HUMIRA [Suspect]
     Indication: PSORIASIS
     Route: 058
     Dates: start: 20120110
  2. UNKNOWN CHOLESTEROL MEDICATION [Concomitant]
     Indication: BLOOD CHOLESTEROL INCREASED
  3. UNKNOWN BLOOD PRESSURE MEDICATION [Concomitant]
     Indication: HYPERTENSION
  4. UNKNOWN BLOOD THINNER [Concomitant]
     Indication: VASCULAR GRAFT
  5. UNKNOWN BLOOD THINNER [Concomitant]
     Indication: STENT PLACEMENT

REACTIONS (1)
  - Injection site bruising [Recovering/Resolving]
